FAERS Safety Report 25395377 (Version 1)
Quarter: 2025Q2

REPORT INFORMATION
  Report Type: Spontaneous
  Country: GB (occurrence: GB)
  Receive Date: 20250604
  Receipt Date: 20250604
  Transmission Date: 20250717
  Serious: Yes (Hospitalization)
  Sender: MYLAN
  Company Number: GB-MYLANLABS-2025M1046635

PATIENT
  Sex: Male

DRUGS (1)
  1. CLOZARIL [Suspect]
     Active Substance: CLOZAPINE
     Indication: Schizophrenia
     Dosage: BID (100 MILLIGRAM IN THE MORNING AND 200 MILLIGRAM IN THE NIGHT) (APPROXIMATE DATE 21-MAY-2025)
     Dates: start: 20220506, end: 202505

REACTIONS (2)
  - Mental impairment [Unknown]
  - Treatment noncompliance [Unknown]
